FAERS Safety Report 24166837 (Version 1)
Quarter: 2024Q3

REPORT INFORMATION
  Report Type: Report from Study
  Country: CA (occurrence: CA)
  Receive Date: 20240802
  Receipt Date: 20240802
  Transmission Date: 20241016
  Serious: Yes (Other)
  Sender: REGENERON
  Company Number: CA-BAYER-2024A110129

PATIENT
  Sex: Female

DRUGS (1)
  1. EYLEA [Suspect]
     Active Substance: AFLIBERCEPT
     Indication: Diabetic retinal oedema
     Dosage: 2MG/0.05ML, SOLUTION FOR INJECTION, 40MG/ML
     Dates: start: 20221209

REACTIONS (2)
  - Eye operation [Unknown]
  - Pain [Unknown]
